FAERS Safety Report 8979407 (Version 1)
Quarter: 2012Q4

REPORT INFORMATION
  Report Type: 
  Country: US (occurrence: US)
  Receive Date: 20121221
  Receipt Date: 20121221
  Transmission Date: 20130627
  Serious: No
  Sender: FDA-Public Use
  Company Number: US-009507513-1212USA008131

PATIENT

DRUGS (2)
  1. COSOPT [Suspect]
     Route: 047
  2. ZIOPTAN [Suspect]
     Route: 047

REACTIONS (1)
  - Hypersensitivity [Unknown]
